FAERS Safety Report 4482977-1 (Version None)
Quarter: 2004Q3

REPORT INFORMATION
  Report Type: 
  Country: None (occurrence: None)
  Receive Date: 20040921
  Receipt Date: 20040527
  Transmission Date: 20050211
  Serious: Yes (Other)
  Sender: FDA-Public Use
  Company Number: 163-20785-04060029

PATIENT
  Age: 64 Year
  Sex: Male
  Weight: 76.6579 kg

DRUGS (6)
  1. THALOMID [Suspect]
     Indication: NON-SMALL CELL LUNG CANCER
     Dosage: 100 MG, DAILY, ORAL
     Route: 048
     Dates: start: 20040422, end: 20040520
  2. DOCETAXEL (DOCETAXEL) [Suspect]
     Indication: NON-SMALL CELL LUNG CANCER
     Dosage: 75 MG/M2
     Dates: start: 20040422, end: 20040513
  3. DOCETAXEL (DOCETAXEL) [Suspect]
     Indication: NON-SMALL CELL LUNG CANCER
     Dosage: 75 MG/M2
     Dates: start: 20040501
  4. PREDNISONE [Concomitant]
  5. LIPITOR [Concomitant]
  6. ATENOLOL [Concomitant]

REACTIONS (1)
  - DEEP VEIN THROMBOSIS [None]
